FAERS Safety Report 4983322-5 (Version None)
Quarter: 2006Q2

REPORT INFORMATION
  Report Type: 
  Country: None (occurrence: None)
  Receive Date: 20060419
  Receipt Date: 20060404
  Transmission Date: 20061013
  Serious: Yes (Congenital Anomaly)
  Sender: FDA-Public Use
  Company Number: 2006EU000882

PATIENT
  Sex: Female
  Weight: 2.6 kg

DRUGS (1)
  1. PROTOPIC [Suspect]
     Dosage: TRANSPLACENTAL
     Route: 064

REACTIONS (10)
  - DEVELOPMENTAL DELAY [None]
  - DRUG EXPOSURE DURING PREGNANCY [None]
  - FOETAL GROWTH RETARDATION [None]
  - HEMIVERTEBRA [None]
  - INGUINAL HERNIA [None]
  - MULTIPLE CONGENITAL ABNORMALITIES [None]
  - NEONATAL DISORDER [None]
  - POLYDACTYLY [None]
  - PSYCHOMOTOR RETARDATION [None]
  - SPINAL DISORDER [None]
